FAERS Safety Report 4757878-1 (Version None)
Quarter: 2005Q3

REPORT INFORMATION
  Report Type: 
  Country: None (occurrence: None)
  Receive Date: 20050830
  Receipt Date: 20050815
  Transmission Date: 20060218
  Serious: Yes (Death)
  Sender: FDA-Public Use
  Company Number: 2005S1000180

PATIENT
  Age: 16 Year
  Sex: Male
  Weight: 150 kg

DRUGS (3)
  1. CUBICIN [Suspect]
     Indication: ENTEROCOCCAL BACTERAEMIA
     Dates: start: 20040101, end: 20040101
  2. CUBICIN [Suspect]
     Indication: PATHOGEN RESISTANCE
     Dates: start: 20040101, end: 20040101
  3. LINEZOLID [Concomitant]

REACTIONS (1)
  - ACUTE LYMPHOCYTIC LEUKAEMIA RECURRENT [None]
